FAERS Safety Report 22154581 (Version 7)
Quarter: 2025Q1

REPORT INFORMATION
  Report Type: Report from Study
  Country: CA (occurrence: CA)
  Receive Date: 20230330
  Receipt Date: 20250128
  Transmission Date: 20250409
  Serious: Yes (Other)
  Sender: TAKEDA
  Company Number: CA-TAKEDA-2023TUS031534

PATIENT
  Age: 73 Year
  Sex: Female

DRUGS (10)
  1. VEDOLIZUMAB [Suspect]
     Active Substance: VEDOLIZUMAB
     Indication: Crohn^s disease
  2. VEDOLIZUMAB [Suspect]
     Active Substance: VEDOLIZUMAB
     Dosage: 300 MILLIGRAM, Q6WEEKS
     Dates: start: 20230529
  3. VEDOLIZUMAB [Suspect]
     Active Substance: VEDOLIZUMAB
     Dosage: 300 MILLIGRAM, Q6WEEKS
  4. VEDOLIZUMAB [Suspect]
     Active Substance: VEDOLIZUMAB
     Dosage: 300 MILLIGRAM, Q4WEEKS
     Dates: start: 20241217
  5. VEDOLIZUMAB [Suspect]
     Active Substance: VEDOLIZUMAB
     Dosage: 300 MILLIGRAM, Q4WEEKS
  6. PANTOPRAZOLE SODIUM [Suspect]
     Active Substance: PANTOPRAZOLE SODIUM
     Indication: Product used for unknown indication
  7. COLESTID [Concomitant]
     Active Substance: COLESTIPOL HYDROCHLORIDE
     Dosage: UNK UNK, BID
  8. RAMIPRIL [Concomitant]
     Active Substance: RAMIPRIL
  9. RIVAROXABAN [Concomitant]
     Active Substance: RIVAROXABAN
  10. PREDNISONE [Concomitant]
     Active Substance: PREDNISONE

REACTIONS (17)
  - Oesophageal ulcer [Unknown]
  - Haemoglobin decreased [Not Recovered/Not Resolved]
  - Oesophagitis [Not Recovered/Not Resolved]
  - Crohn^s disease [Unknown]
  - Pulmonary embolism [Unknown]
  - Erosive oesophagitis [Unknown]
  - Colon cancer [Unknown]
  - Therapeutic reaction time decreased [Unknown]
  - Off label use [Unknown]
  - Mean cell volume decreased [Unknown]
  - Serum ferritin decreased [Unknown]
  - Hiatus hernia [Unknown]
  - Aphthous ulcer [Unknown]
  - Hypertension [Unknown]
  - Haemorrhoids [Unknown]
  - Arthralgia [Unknown]
  - Nausea [Unknown]

NARRATIVE: CASE EVENT DATE: 20230529
